FAERS Safety Report 25618520 (Version 2)
Quarter: 2025Q3

REPORT INFORMATION
  Report Type: Spontaneous
  Country: CA (occurrence: CA)
  Receive Date: 20250729
  Receipt Date: 20250925
  Transmission Date: 20251020
  Serious: Yes (Other)
  Sender: PFIZER
  Company Number: CA-PFIZER INC-202400191478

PATIENT
  Age: 47 Year
  Sex: Male

DRUGS (3)
  1. ABRILADA [Suspect]
     Active Substance: ADALIMUMAB-AFZB
     Indication: Hidradenitis
     Route: 058
     Dates: start: 20240415
  2. ABRILADA [Suspect]
     Active Substance: ADALIMUMAB-AFZB
     Route: 058
     Dates: start: 20240612
  3. DOXYCYCLINE [Concomitant]
     Active Substance: DOXYCYCLINE
     Dosage: 100 MG, 2X/DAY
     Route: 065
     Dates: start: 2023

REACTIONS (1)
  - Cerebrovascular arteriovenous malformation [Unknown]

NARRATIVE: CASE EVENT DATE: 20241001
